FAERS Safety Report 5793616-1 (Version None)
Quarter: 2008Q2

REPORT INFORMATION
  Report Type: 
  Country: None (occurrence: None)
  Receive Date: 20080627
  Receipt Date: 20080619
  Transmission Date: 20081010
  Serious: Yes (Death, Hospitalization)
  Sender: FDA-Public Use
  Company Number: JP-BRISTOL-MYERS SQUIBB COMPANY-14242127

PATIENT
  Age: 17 Year
  Sex: Female

DRUGS (8)
  1. IFOMIDE [Suspect]
     Indication: EWING'S SARCOMA
     Dosage: DOSAGE:3G/D OVER 4 DAYS;STARTED ON 02NOV02
     Route: 041
     Dates: start: 20021208, end: 20021208
  2. ADRIACIN [Suspect]
     Indication: EWING'S SARCOMA
     Dosage: DOSAGE:40MG/D OVER 2 DAYS;STARTED ON 02NOV02
     Route: 041
     Dates: start: 20021208, end: 20021208
  3. UROMITEXAN [Concomitant]
     Indication: EWING'S SARCOMA
     Route: 041
     Dates: start: 20021102, end: 20021208
  4. ANNACA [Concomitant]
     Indication: EWING'S SARCOMA
     Route: 041
     Dates: start: 20021102, end: 20021208
  5. KYTRIL [Concomitant]
     Indication: EWING'S SARCOMA
     Route: 041
     Dates: start: 20021102, end: 20021208
  6. DECADRON [Concomitant]
     Indication: EWING'S SARCOMA
     Route: 041
     Dates: start: 20021102, end: 20021208
  7. NARTOGRASTIM [Concomitant]
     Route: 042
     Dates: start: 20021217, end: 20021218
  8. FILGRASTIM [Concomitant]
     Route: 058
     Dates: start: 20021218, end: 20021219

REACTIONS (3)
  - METASTASES TO LUNG [None]
  - PREGNANCY [None]
  - WHITE BLOOD CELL COUNT DECREASED [None]
